FAERS Safety Report 5000724-1 (Version None)
Quarter: 2006Q2

REPORT INFORMATION
  Report Type: 
  Country: None (occurrence: None)
  Receive Date: 20060512
  Receipt Date: 20060301
  Transmission Date: 20061013
  Serious: Yes (Other)
  Sender: FDA-Public Use
  Company Number: US-AMGEN-US171068

PATIENT
  Sex: Male

DRUGS (5)
  1. ENBREL [Suspect]
     Indication: PSORIATIC ARTHROPATHY
     Route: 058
     Dates: start: 19981201, end: 20060401
  2. ASPIRIN [Concomitant]
     Dates: start: 19990518
  3. ALLOPURINOL [Concomitant]
     Dates: start: 20030501
  4. ETODOLAC [Concomitant]
     Dates: start: 20050301, end: 20050601
  5. PREDNISONE TAB [Concomitant]

REACTIONS (2)
  - BLADDER CANCER [None]
  - HAEMATURIA [None]
